FAERS Safety Report 10054905 (Version 2)
Quarter: 2014Q2

REPORT INFORMATION
  Report Type: Spontaneous
  Country: JP (occurrence: JP)
  Receive Date: 20140402
  Receipt Date: 20140402
  Transmission Date: 20141212
  Serious: Yes (Hospitalization, Other)
  Sender: FDA-Public Use
  Company Number: JP-TAKEDA-TCI2012A05307

PATIENT
  Age: 79 Year
  Sex: Female

DRUGS (3)
  1. TAKEPRON OD TABLETS 15 [Suspect]
     Indication: GASTRIC ULCER
     Dosage: 15 MG, QD
     Route: 048
     Dates: start: 20120815, end: 20120910
  2. TAKEPRON OD TABLETS 15 [Suspect]
     Indication: DUODENAL ULCER
  3. SULPERAZON [Concomitant]
     Dosage: 1 G, BID
     Route: 041
     Dates: start: 20120814, end: 20120819

REACTIONS (2)
  - Ileus paralytic [Recovered/Resolved]
  - Colitis microscopic [Recovered/Resolved]
